FAERS Safety Report 5102187-4 (Version None)
Quarter: 2006Q3

REPORT INFORMATION
  Report Type: 
  Country: None (occurrence: None)
  Receive Date: 20060912
  Receipt Date: 20060906
  Transmission Date: 20061208
  Serious: Yes (Hospitalization)
  Sender: FDA-Public Use
  Company Number: US-JNJFOC-20060901727

PATIENT
  Age: 18 Year
  Sex: Male
  Weight: 63.5 kg

DRUGS (2)
  1. EXTRA STRENGTH TYLENOL [Suspect]
  2. EXTRA STRENGTH TYLENOL [Suspect]
     Indication: TOOTHACHE
     Dosage: AS NEEDED

REACTIONS (3)
  - BLISTER [None]
  - DERMATITIS BULLOUS [None]
  - ULCER [None]
